FAERS Safety Report 11785269 (Version 1)
Quarter: 2015Q4

REPORT INFORMATION
  Report Type: Spontaneous
  Country: US (occurrence: None)
  Receive Date: 20151125
  Receipt Date: 20151125
  Transmission Date: 20160305
  Serious: Yes (Hospitalization)
  Sender: FDA-Public Use
  Company Number: None

PATIENT
  Age: 63 Year
  Sex: Male
  Weight: 104.33 kg

DRUGS (8)
  1. ALLOPURINOL. [Concomitant]
     Active Substance: ALLOPURINOL
  2. METOPROLOL [Concomitant]
     Active Substance: METOPROLOL
  3. ASPIRIN. [Concomitant]
     Active Substance: ASPIRIN
  4. PRALUENT [Suspect]
     Active Substance: ALIROCUMAB
     Indication: LOW DENSITY LIPOPROTEIN INCREASED
     Dosage: Q2W; ONE SHOT
     Dates: start: 201510, end: 20151114
  5. FUROSEMIDE. [Concomitant]
     Active Substance: FUROSEMIDE
  6. DIAZEPAM. [Concomitant]
     Active Substance: DIAZEPAM
  7. HYDROCODEIN [Concomitant]
  8. OMEGA 3 [Concomitant]
     Active Substance: OMEGA-3 FATTY ACIDS

REACTIONS (15)
  - Rash pruritic [None]
  - Nasopharyngitis [None]
  - Pain in extremity [None]
  - Vomiting [None]
  - Asthenia [None]
  - Fatigue [None]
  - Muscle spasms [None]
  - Musculoskeletal pain [None]
  - Rhinorrhoea [None]
  - Injection site discolouration [None]
  - Influenza [None]
  - Chest discomfort [None]
  - Back pain [None]
  - Dyspnoea [None]
  - Headache [None]

NARRATIVE: CASE EVENT DATE: 201510
